FAERS Safety Report 10247922 (Version 2)
Quarter: 2014Q2

REPORT INFORMATION
  Report Type: Spontaneous
  Country: CA (occurrence: CA)
  Receive Date: 20140619
  Receipt Date: 20140619
  Transmission Date: 20141212
  Serious: No
  Sender: FDA-Public Use
  Company Number: CA-BAXTER-2014BAX027683

PATIENT
  Age: 62 Year
  Sex: Male
  Weight: 100 kg

DRUGS (6)
  1. GAMMAGARD LIQUID -IMMUNE GLOBULIN INTRAVENOUS (HUMAN), [IGIV] 10% [Suspect]
     Indication: PRODUCT USED FOR UNKNOWN INDICATION
     Dosage: FRACTION ON 4/4
     Route: 042
     Dates: start: 20140409, end: 20140409
  2. GAMMAGARD LIQUID -IMMUNE GLOBULIN INTRAVENOUS (HUMAN), [IGIV] 10% [Suspect]
     Route: 042
     Dates: start: 20140409, end: 20140409
  3. IVIG [Suspect]
     Indication: PREMEDICATION
     Route: 065
  4. SOLUCORTEF [Concomitant]
     Indication: PREMEDICATION
     Dosage: 100
     Route: 065
  5. BENADRYL 25 [Concomitant]
     Indication: PREMEDICATION
     Dosage: 25
     Route: 065
  6. TYLENOL [Concomitant]
     Indication: PREMEDICATION
     Route: 065

REACTIONS (2)
  - Muscle spasms [Recovered/Resolved]
  - Back pain [Recovered/Resolved]
